FAERS Safety Report 7298922-X (Version None)
Quarter: 2011Q1

REPORT INFORMATION
  Report Type: 
  Country: None (occurrence: None)
  Receive Date: 20110217
  Receipt Date: 20110208
  Transmission Date: 20110831
  Serious: Yes (Other)
  Sender: FDA-Public Use
  Company Number: PHHY2011FR11315

PATIENT
  Sex: Female

DRUGS (8)
  1. TRANXENE [Concomitant]
     Dosage: UNK
  2. TEGRETOL [Suspect]
     Dosage: 200 MG, QD
  3. PIPORTIL [Concomitant]
     Dosage: UNK
  4. TEGRETOL [Suspect]
     Indication: SCHIZOPHRENIA
     Dosage: 800 MG, QD
  5. FORLAX [Concomitant]
     Dosage: UNK
  6. PAROXETINE HCL [Concomitant]
     Dosage: UNK
  7. BETAHISTINE [Concomitant]
     Dosage: UNK
  8. LEPTICUR [Concomitant]
     Dosage: UNK

REACTIONS (2)
  - HYPONATRAEMIA [None]
  - HYPERAMMONAEMIA [None]
